FAERS Safety Report 9013518 (Version 1)
Quarter: 2012Q4

REPORT INFORMATION
  Report Type: Spontaneous
  Country: ES (occurrence: None)
  Receive Date: 20121231
  Receipt Date: 20121231
  Transmission Date: 20130627
  Serious: Yes (Hospitalization)
  Sender: FDA-Public Use
  Company Number: DSA_61600_2012

PATIENT
  Age: 58 Year
  Sex: Female

DRUGS (6)
  1. FLUOROURACIL (FLUOROURACIL) [Suspect]
     Indication: BREAST CANCER
     Dosage: DF every cycle Intravenous (not otherwise specified)
     Dates: start: 20011030, end: 20020712
  2. DOXORUBICIN (DOXORUBICIN) (DOXORUBICIN) [Suspect]
     Indication: BREAST CANCER
     Dosage: DF, every cycle Intravenous (not otherwise specified)
     Dates: start: 20011030, end: 20020712
  3. CYCLOPHOSPHAMIDE (CYCLOPHOSPHAMIDE) [Suspect]
     Indication: BREAST CANCER
     Dosage: DF, every cycle Intravenous (not otherwise specified)
     Dates: start: 20011030, end: 20020712
  4. ACOVIL [Concomitant]
  5. METFORMIN [Concomitant]
  6. GLIMEPIRIDE [Concomitant]

REACTIONS (3)
  - Cardiac failure congestive [None]
  - Mitral valve incompetence [None]
  - Palpitations [None]
